FAERS Safety Report 7242724-7 (Version None)
Quarter: 2011Q1

REPORT INFORMATION
  Report Type: 
  Country: None (occurrence: None)
  Receive Date: 20110125
  Receipt Date: 20110112
  Transmission Date: 20110831
  Serious: Yes (Other)
  Sender: FDA-Public Use
  Company Number: PHHY2011US03478

PATIENT

DRUGS (2)
  1. LITHIUM [Suspect]
  2. CLOZARIL [Suspect]

REACTIONS (3)
  - WHITE BLOOD CELL COUNT DECREASED [None]
  - ATAXIA [None]
  - DYSARTHRIA [None]
